FAERS Safety Report 24372143 (Version 1)
Quarter: 2024Q3

REPORT INFORMATION
  Report Type: Spontaneous
  Country: FR (occurrence: FR)
  Receive Date: 20240927
  Receipt Date: 20240927
  Transmission Date: 20241017
  Serious: Yes (Other)
  Sender: CHEPLAPHARM
  Company Number: None

PATIENT
  Age: 22 Year
  Sex: Male

DRUGS (6)
  1. CLONAZEPAM [Suspect]
     Active Substance: CLONAZEPAM
     Dates: start: 2024
  2. OLANZAPINE [Suspect]
     Active Substance: OLANZAPINE
     Dates: start: 20240425
  3. COCAINE [Suspect]
     Active Substance: COCAINE
     Dosage: USE OF COCAINE, CRACK (3 TO 4 G)
     Dates: start: 2024
  4. CANNABIS SATIVA SUBSP. INDICA TOP [Suspect]
     Active Substance: CANNABIS SATIVA SUBSP. INDICA TOP
     Dates: start: 2024
  5. LYRICA [Suspect]
     Active Substance: PREGABALIN
     Dates: start: 2024, end: 20240425
  6. VALIUM [Concomitant]
     Active Substance: DIAZEPAM

REACTIONS (2)
  - Drug dependence [Not Recovered/Not Resolved]
  - Overdose [Unknown]
